FAERS Safety Report 8505820-X (Version None)
Quarter: 2012Q2

REPORT INFORMATION
  Report Type: 
  Country: None (occurrence: None)
  Receive Date: 20120629
  Receipt Date: 20110415
  Transmission Date: 20120825
  Serious: Yes (Hospitalization)
  Sender: FDA-Public Use
  Company Number: RU-ALCON-1185879

PATIENT
  Age: 62 Year
  Sex: Female

DRUGS (2)
  1. DICLO-F: OPHTHALMIC / DICLOFENAC [Concomitant]
  2. MAXIDEX [Suspect]
     Indication: POSTOPERATIVE CARE
     Dosage: 2 , GTT DROP(S), 4, 1, DAYS OPHTHALMIC
     Route: 047
     Dates: start: 20110404

REACTIONS (6)
  - HERPES VIRUS INFECTION [None]
  - VISUAL ACUITY REDUCED [None]
  - SENSATION OF FOREIGN BODY [None]
  - CORNEAL EROSION [None]
  - CORNEAL OPACITY [None]
  - EYE IRRITATION [None]
